FAERS Safety Report 22683744 (Version 2)
Quarter: 2023Q4

REPORT INFORMATION
  Report Type: Spontaneous
  Country: IT (occurrence: IT)
  Receive Date: 20230708
  Receipt Date: 20231108
  Transmission Date: 20240109
  Serious: Yes (Hospitalization, Other)
  Sender: FDA-Public Use
  Company Number: IT-ROCHE-3317050

PATIENT
  Age: 78 Year
  Sex: Female

DRUGS (27)
  1. DOXORUBICIN [Suspect]
     Active Substance: DOXORUBICIN
     Indication: Diffuse large B-cell lymphoma
     Dosage: 50 MG/M2, QD, ON, 12/JUN/2015 PATIENT RECEIVED MOST RECENT DOSE PRIOR TO AE.
     Route: 042
     Dates: start: 20150522
  2. CYCLOPHOSPHAMIDE [Suspect]
     Active Substance: CYCLOPHOSPHAMIDE
     Indication: Diffuse large B-cell lymphoma
     Dosage: 750 MG, QD, ON, 12/JUN/2015 PATIENT RECEIVED MOST RECENT DOSE PRIOR TO AE.
     Route: 048
     Dates: start: 20150522
  3. VINCRISTINE [Suspect]
     Active Substance: VINCRISTINE
     Indication: Diffuse large B-cell lymphoma
     Dosage: 21 MG, QD, ON, 12/JUN/2015 PATIENT RECEIVED MOST RECENT DOSE PRIOR TO AE.
     Route: 042
     Dates: start: 20150522
  4. LENALIDOMIDE [Suspect]
     Active Substance: LENALIDOMIDE
     Indication: Diffuse large B-cell lymphoma
     Dosage: 15 MG
     Route: 042
     Dates: start: 20150522, end: 20150619
  5. RITUXIMAB [Suspect]
     Active Substance: RITUXIMAB
     Indication: Diffuse large B-cell lymphoma
     Dosage: 375 MG/M2, QD, ON, 12/JUN/2015 PATIENT RECEIVED MOST RECENT DOSE PRIOR TO AE.
     Route: 048
     Dates: start: 20150522
  6. PREDNISONE [Suspect]
     Active Substance: PREDNISONE
     Indication: Diffuse large B-cell lymphoma
     Dosage: 100 MG, QD, ON 12/JUN/2015 PATIENT RECEIVED MOST RECENT DOSE PRIOR TO AE.
     Route: 042
     Dates: start: 20150515
  7. SULFAMETHOXAZOLE [Concomitant]
     Active Substance: SULFAMETHOXAZOLE
     Route: 065
  8. RAMIPRIL [Concomitant]
     Active Substance: RAMIPRIL
     Indication: Hypertension
     Route: 065
  9. RAMIPRIL [Concomitant]
     Active Substance: RAMIPRIL
     Route: 065
  10. SIMVASTATIN [Concomitant]
     Active Substance: SIMVASTATIN
     Route: 065
  11. SIMVASTATIN [Concomitant]
     Active Substance: SIMVASTATIN
     Dosage: UNK
     Route: 065
  12. LAXIPEG [Concomitant]
     Route: 065
  13. CHLORHEXIDINE [Concomitant]
     Active Substance: CHLORHEXIDINE\CHLORHEXIDINE GLUCONATE
     Route: 065
  14. CHLORHEXIDINE [Concomitant]
     Active Substance: CHLORHEXIDINE\CHLORHEXIDINE GLUCONATE
     Route: 065
  15. ONDANSETRON [Concomitant]
     Active Substance: ONDANSETRON
     Indication: Nausea
     Dosage: UNK
     Route: 065
  16. ONDANSETRON [Concomitant]
     Active Substance: ONDANSETRON
     Route: 065
  17. LACTULOSE [Concomitant]
     Active Substance: LACTULOSE
     Route: 065
  18. LACTULOSE [Concomitant]
     Active Substance: LACTULOSE
     Route: 065
  19. NYSTATIN [Concomitant]
     Active Substance: NYSTATIN
     Route: 065
  20. NYSTATIN [Concomitant]
     Active Substance: NYSTATIN
     Route: 065
  21. TRIMETHOPRIM [Concomitant]
     Active Substance: TRIMETHOPRIM
     Route: 065
  22. ALLOPURINOL [Concomitant]
     Active Substance: ALLOPURINOL
     Route: 065
  23. POLYETHYLENE GLYCOL 400 [Concomitant]
     Active Substance: POLYETHYLENE GLYCOL 400
     Route: 065
  24. LAMIVUDINE [Concomitant]
     Active Substance: LAMIVUDINE
     Route: 065
  25. BACTRIM [Concomitant]
     Active Substance: SULFAMETHOXAZOLE\TRIMETHOPRIM
     Route: 065
  26. ASPIRIN [Concomitant]
     Active Substance: ASPIRIN
     Route: 065
  27. ASPIRIN [Concomitant]
     Active Substance: ASPIRIN
     Route: 065

REACTIONS (2)
  - Campylobacter gastroenteritis [Recovered/Resolved]
  - Febrile neutropenia [Recovered/Resolved]

NARRATIVE: CASE EVENT DATE: 20150618
